FAERS Safety Report 11916055 (Version 1)
Quarter: 2016Q1

REPORT INFORMATION
  Report Type: Spontaneous
  Country: US (occurrence: None)
  Receive Date: 20160113
  Receipt Date: 20160113
  Transmission Date: 20160526
  Serious: Yes (Life-Threatening)
  Sender: FDA-Public Use
  Company Number: None

PATIENT
  Age: 25 Year
  Sex: Male
  Weight: 76.66 kg

DRUGS (2)
  1. LAMOTRIGINE 100 MG GSK [Suspect]
     Active Substance: LAMOTRIGINE
  2. LAMOTRIGINE 200 MG GSK [Suspect]
     Active Substance: LAMOTRIGINE

REACTIONS (3)
  - Treatment noncompliance [None]
  - Product substitution issue [None]
  - Seizure [None]

NARRATIVE: CASE EVENT DATE: 20141023
